FAERS Safety Report 5284922-8 (Version None)
Quarter: 2007Q1

REPORT INFORMATION
  Report Type: 
  Country: None (occurrence: None)
  Receive Date: 20061229
  Receipt Date: 20060926
  Transmission Date: 20070707
  Serious: Yes (Other)
  Sender: FDA-Public Use
  Company Number: PHEH2006US12195

PATIENT
  Age: 57 Year
  Sex: Female

DRUGS (3)
  1. CLOZAPINE [Suspect]
     Dosage: 25 MG, ORAL
     Route: 048
  2. RISPERDAL [Suspect]
  3. CYMBALTA [Concomitant]

REACTIONS (3)
  - CONVULSION [None]
  - JAW DISORDER [None]
  - WEIGHT INCREASED [None]
